FAERS Safety Report 5232895-6 (Version None)
Quarter: 2007Q1

REPORT INFORMATION
  Report Type: 
  Country: None (occurrence: None)
  Receive Date: 20070207
  Receipt Date: 20070126
  Transmission Date: 20070707
  Serious: Yes (Other)
  Sender: FDA-Public Use
  Company Number: US-NOVOPROD-260358

PATIENT
  Sex: Male

DRUGS (2)
  1. NOVOSEVEN [Suspect]
     Indication: HAEMORRHAGE
     Dosage: UNKNOWN
  2. NOVOSEVEN [Suspect]
     Indication: GUN SHOT WOUND

REACTIONS (1)
  - CEREBROVASCULAR ACCIDENT [None]
